FAERS Safety Report 17972078 (Version 7)
Quarter: 2020Q3

REPORT INFORMATION
  Report Type: Report from Study
  Country: None (occurrence: CH)
  Receive Date: 20200701
  Receipt Date: 20200923
  Transmission Date: 20201103
  Serious: Yes (Hospitalization, Other)
  Sender: FDA-Public Use
  Company Number: CH-ABBVIE-20K-151-3466280-00

PATIENT
  Age: 84 Year
  Sex: Female
  Weight: 56 kg

DRUGS (3)
  1. DUODOPA [Suspect]
     Active Substance: CARBIDOPA\LEVODOPA
     Indication: PARKINSON^S DISEASE
     Route: 050
     Dates: start: 20161215, end: 20190329
  2. DUODOPA [Suspect]
     Active Substance: CARBIDOPA\LEVODOPA
     Dosage: MD: 5 ML, CRD: 1.7 ML/H, CRN: 0 ML/H, ED: 3 ML, 16 H THERAPY
     Route: 050
     Dates: start: 20190329, end: 20200605
  3. DUODOPA [Suspect]
     Active Substance: CARBIDOPA\LEVODOPA
     Dosage: MD: 5 ML, CRD: 1.3 ML/H, CRN: 0 ML/H, ED: 3 ML, 16 H THERAPY
     Route: 050
     Dates: start: 20200605

REACTIONS (8)
  - Leukoencephalopathy [Not Recovered/Not Resolved]
  - Fluid intake reduced [Unknown]
  - Hypertension [Unknown]
  - Syncope [Recovered/Resolved]
  - Epilepsy [Unknown]
  - Hypophagia [Unknown]
  - Dysgeusia [Unknown]
  - Fatigue [Unknown]

NARRATIVE: CASE EVENT DATE: 2020
